FAERS Safety Report 8958683 (Version 2)
Quarter: 2014Q2

REPORT INFORMATION
  Report Type: Report from Study
  Country: CH (occurrence: CH)
  Receive Date: 20121212
  Receipt Date: 20140512
  Transmission Date: 20141212
  Serious: Yes (Hospitalization, Other)
  Sender: FDA-Public Use
  Company Number: CH-ROCHE-799535

PATIENT
  Age: 67 Year
  Sex: Male
  Weight: 63 kg

DRUGS (2)
  1. VEMURAFENIB [Suspect]
     Indication: METASTATIC MALIGNANT MELANOMA
     Dosage: MOST RECENT DOSE PRIOR TO SAE:13-SEP-2011
     Route: 048
  2. MEFENAMIC ACID [Concomitant]
     Indication: CHEST PAIN
     Dosage: AS REQUIRED
     Route: 065
     Dates: start: 20110912, end: 20110929

REACTIONS (2)
  - Oral papilloma [Recovered/Resolved]
  - Squamous cell carcinoma of skin [Recovered/Resolved]
